FAERS Safety Report 7880317-9 (Version None)
Quarter: 2011Q4

REPORT INFORMATION
  Report Type: 
  Country: None (occurrence: None)
  Receive Date: 20111101
  Receipt Date: 20111021
  Transmission Date: 20120403
  Serious: Yes (Hospitalization, Other)
  Sender: FDA-Public Use
  Company Number: US-BAYER-2011-050174

PATIENT
  Age: 23 Year
  Sex: Female
  Weight: 61.224 kg

DRUGS (2)
  1. YAZ [Suspect]
     Indication: ACNE
     Dosage: UNK
     Dates: start: 20090101, end: 20090101
  2. YAZ [Suspect]
     Indication: PREMENSTRUAL SYNDROME

REACTIONS (3)
  - PAIN [None]
  - PULMONARY EMBOLISM [None]
  - PULMONARY FIBROSIS [None]
